FAERS Safety Report 8452172-X (Version None)
Quarter: 2012Q2

REPORT INFORMATION
  Report Type: 
  Country: None (occurrence: None)
  Receive Date: 20120620
  Receipt Date: 20120615
  Transmission Date: 20120825
  Serious: No
  Sender: FDA-Public Use
  Company Number: JP-GLAXOSMITHKLINE-B0805402A

PATIENT
  Sex: Female

DRUGS (7)
  1. ARIXTRA [Suspect]
     Indication: DEEP VEIN THROMBOSIS
     Dosage: 5MG PER DAY
     Route: 058
     Dates: start: 20120514, end: 20120521
  2. OXYCONTIN [Concomitant]
     Indication: CANCER PAIN
     Route: 048
     Dates: start: 20120514
  3. WARFARIN SODIUM [Concomitant]
     Dosage: 2MG PER DAY
     Route: 048
  4. FLUMARIN [Concomitant]
     Indication: LYMPHADENITIS
     Dosage: 2G PER DAY
     Route: 042
     Dates: start: 20120514, end: 20120518
  5. WARFARIN SODIUM [Concomitant]
     Indication: THROMBOSIS
     Dosage: 1MG PER DAY
     Route: 048
     Dates: start: 20120516
  6. MAXIPIME [Concomitant]
     Indication: LYMPHADENITIS
     Dosage: 2G PER DAY
     Route: 042
     Dates: start: 20120519, end: 20120521
  7. LANSOPRAZOLE [Concomitant]
     Indication: GASTRITIS
     Dosage: 15MG PER DAY
     Route: 048
     Dates: start: 20120516

REACTIONS (4)
  - FACE OEDEMA [None]
  - ERYTHEMA [None]
  - PRURITUS [None]
  - EYELID OEDEMA [None]
